FAERS Safety Report 25602102 (Version 1)
Quarter: 2025Q3

REPORT INFORMATION
  Report Type: Spontaneous
  Country: US (occurrence: None)
  Receive Date: 20250723
  Receipt Date: 20250723
  Transmission Date: 20251020
  Serious: Yes (Other)
  Sender: FDA-CTU
  Company Number: None

PATIENT
  Age: 41 Year
  Sex: Female
  Weight: 94.05 kg

DRUGS (2)
  1. KETAMINE [Suspect]
     Active Substance: KETAMINE
     Indication: Road traffic accident
  2. KETAMINE [Suspect]
     Active Substance: KETAMINE
     Indication: Injury

REACTIONS (6)
  - Drug ineffective [None]
  - Pain [None]
  - Symptom recurrence [None]
  - Product dispensing error [None]
  - Product dispensing error [None]
  - Product tampering [None]

NARRATIVE: CASE EVENT DATE: 20250723
